FAERS Safety Report 17120053 (Version 1)
Quarter: 2019Q4

REPORT INFORMATION
  Report Type: Spontaneous
  Country: US (occurrence: US)
  Receive Date: 20191206
  Receipt Date: 20191206
  Transmission Date: 20200122
  Serious: Yes (Other)
  Sender: FDA-Public Use
  Company Number: US-STRIDES ARCOLAB LIMITED-2019SP012134

PATIENT
  Sex: Female

DRUGS (6)
  1. INFLIXIMAB [Suspect]
     Active Substance: INFLIXIMAB
     Indication: IMMUNOMODULATORY THERAPY
  2. CYCLOSPORINE. [Suspect]
     Active Substance: CYCLOSPORINE
     Indication: IMMUNOMODULATORY THERAPY
  3. INFLIXIMAB [Suspect]
     Active Substance: INFLIXIMAB
     Indication: BIRDSHOT CHORIORETINOPATHY
     Dosage: UNK
     Route: 065
  4. CYCLOSPORINE. [Suspect]
     Active Substance: CYCLOSPORINE
     Indication: BIRDSHOT CHORIORETINOPATHY
     Dosage: UNK
     Route: 065
  5. MYCOPHENOLATE MOFETIL. [Suspect]
     Active Substance: MYCOPHENOLATE MOFETIL
     Indication: BIRDSHOT CHORIORETINOPATHY
     Dosage: UNK
     Route: 065
  6. MYCOPHENOLATE MOFETIL. [Suspect]
     Active Substance: MYCOPHENOLATE MOFETIL
     Indication: IMMUNOMODULATORY THERAPY

REACTIONS (5)
  - Off label use [Unknown]
  - Arthralgia [Unknown]
  - Rash [Unknown]
  - Fatigue [Unknown]
  - Systemic lupus erythematosus [Unknown]
